FAERS Safety Report 6172858-X (Version None)
Quarter: 2009Q2

REPORT INFORMATION
  Report Type: 
  Country: None (occurrence: None)
  Receive Date: 20090430
  Receipt Date: 20090417
  Transmission Date: 20091009
  Serious: Yes (Other)
  Sender: FDA-Public Use
  Company Number: US-ROCHE-628192

PATIENT
  Age: 60 Year
  Sex: Female

DRUGS (2)
  1. PEGASYS [Suspect]
     Dosage: TREATMENT TAKEN FOR 24 WEEKS, DISCONTINUED FOR COUPLE OF YEARS
     Route: 065
  2. RIBAVIRIN [Suspect]
     Dosage: TREATMENT TAKEN FOR 24 WEEKS, DISCONTINUED FOR COUPLE OF YEARS
     Route: 065

REACTIONS (4)
  - FEELING ABNORMAL [None]
  - FIBROSIS [None]
  - HEPATIC CIRRHOSIS [None]
  - VARICES OESOPHAGEAL [None]
